FAERS Safety Report 17618912 (Version 4)
Quarter: 2020Q2

REPORT INFORMATION
  Report Type: Report from Study
  Country: US (occurrence: US)
  Receive Date: 20200402
  Receipt Date: 20200618
  Transmission Date: 20200713
  Serious: Yes (Hospitalization)
  Sender: FDA-Public Use
  Company Number: US-BIOGEN-2020BI00853010

PATIENT
  Age: 47 Year
  Sex: Female

DRUGS (1)
  1. TYSABRI [Suspect]
     Active Substance: NATALIZUMAB
     Indication: MULTIPLE SCLEROSIS
     Dosage: INFUSED OVER ONE HOUR
     Route: 042
     Dates: start: 20190619, end: 202001

REACTIONS (12)
  - Dizziness [Unknown]
  - Vitamin D deficiency [Unknown]
  - Blood triglycerides decreased [Unknown]
  - Abdominal discomfort [Recovered/Resolved]
  - Anaemia [Unknown]
  - Somnolence [Unknown]
  - Appetite disorder [Unknown]
  - Malaise [Unknown]
  - Blood glucose decreased [Unknown]
  - Hypokalaemia [Unknown]
  - Blood calcium abnormal [Unknown]
  - Fatigue [Recovered/Resolved]

NARRATIVE: CASE EVENT DATE: 202002
